FAERS Safety Report 25142346 (Version 1)
Quarter: 2025Q1

REPORT INFORMATION
  Report Type: Spontaneous
  Country: US (occurrence: US)
  Receive Date: 20250331
  Receipt Date: 20250331
  Transmission Date: 20250408
  Serious: No
  Sender: EVOLUS, INC.
  Company Number: US-Evolus, Inc.-2024EV000259

PATIENT
  Age: 59 Year
  Sex: Female

DRUGS (2)
  1. JEUVEAU [Suspect]
     Active Substance: PRABOTULINUMTOXINA-XVFS
     Indication: Product used for unknown indication
     Dates: start: 202405, end: 202405
  2. JEUVEAU [Suspect]
     Active Substance: PRABOTULINUMTOXINA-XVFS
     Indication: Skin wrinkling

REACTIONS (5)
  - Reduced facial expression [Unknown]
  - Pain in jaw [Recovered/Resolved]
  - Vision blurred [Unknown]
  - Eyelid ptosis [Unknown]
  - Off label use [Unknown]
